FAERS Safety Report 9001680 (Version 1)
Quarter: 2013Q1

REPORT INFORMATION
  Report Type: Spontaneous
  Country: CA (occurrence: CA)
  Receive Date: 20130107
  Receipt Date: 20130107
  Transmission Date: 20140127
  Serious: Yes (Other)
  Sender: FDA-Public Use
  Company Number: PHHY2012CA122652

PATIENT
  Sex: Female

DRUGS (2)
  1. ACLASTA [Suspect]
     Indication: OSTEOPOROSIS
     Dosage: UNK
     Route: 042
     Dates: start: 20111212
  2. ACLASTA [Suspect]
     Dosage: UNK
     Route: 042
     Dates: start: 20121214

REACTIONS (9)
  - Urinary tract infection [Unknown]
  - Migraine [Unknown]
  - Confusional state [Unknown]
  - Feeling abnormal [Unknown]
  - Nausea [Unknown]
  - Vomiting [Unknown]
  - Pyrexia [Unknown]
  - Myalgia [Unknown]
  - Pain [Unknown]
